FAERS Safety Report 21499253 (Version 1)
Quarter: 2022Q4

REPORT INFORMATION
  Report Type: Spontaneous
  Country: US (occurrence: None)
  Receive Date: 20221023
  Receipt Date: 20221023
  Transmission Date: 20230112
  Serious: Yes (Life-Threatening, Disabling, Other)
  Sender: FDA-Public Use
  Company Number: None

PATIENT
  Age: 42 Year
  Sex: Female
  Weight: 108 kg

DRUGS (6)
  1. LAMOTRIGINE [Suspect]
     Active Substance: LAMOTRIGINE
     Dosage: FREQUENCY : DAILY;?
     Route: 048
     Dates: start: 20220601
  2. BUPROPION [Suspect]
     Active Substance: BUPROPION
     Dates: start: 20220101
  3. SUBOXONE [Concomitant]
     Active Substance: BUPRENORPHINE HYDROCHLORIDE\NALOXONE HYDROCHLORIDE
  4. HYDROXYZINE [Concomitant]
     Active Substance: HYDROXYZINE HYDROCHLORIDE
  5. LINZESS [Concomitant]
     Active Substance: LINACLOTIDE
  6. Flintstone multivitamn [Concomitant]

REACTIONS (10)
  - Depression [None]
  - Anger [None]
  - Aggression [None]
  - Suicidal ideation [None]
  - Homicidal ideation [None]
  - Anger [None]
  - Therapy change [None]
  - Confusional state [None]
  - Amnesia [None]
  - Conversion disorder [None]
